FAERS Safety Report 5233946-5 (Version None)
Quarter: 2007Q1

REPORT INFORMATION
  Report Type: 
  Country: None (occurrence: None)
  Receive Date: 20061204
  Receipt Date: 20060803
  Transmission Date: 20070707
  Serious: No
  Sender: FDA-Public Use
  Company Number: 2006-BP-08224BP

PATIENT
  Age: 72 Year
  Sex: Female

DRUGS (5)
  1. SPIRIVA [Suspect]
     Indication: CHRONIC OBSTRUCTIVE PULMONARY DISEASE
     Dosage: 36 MCG (18 MCG,2 IN 1 D),IH
     Route: 055
     Dates: start: 20060618, end: 20060620
  2. ASTELIN (ALL OTHER THERAPEUTIC PRODUCTS) [Concomitant]
  3. ALBUTEROL INHALATION AEROSOL (SALBUTAMOL) (SALBUTAMOL, IPRATROPIUM-BR) [Concomitant]
  4. DARVON (ALL OTHER THERAPEUTIC PRODUCTS) [Concomitant]
  5. ASPIRIN [Concomitant]

REACTIONS (2)
  - ANGIOEDEMA [None]
  - OEDEMA PERIPHERAL [None]
